FAERS Safety Report 9256898 (Version 2)
Quarter: 2014Q1

REPORT INFORMATION
  Report Type: Spontaneous
  Country: US (occurrence: US)
  Receive Date: 20130426
  Receipt Date: 20140114
  Transmission Date: 20141002
  Serious: Yes (Disabling)
  Sender: FDA-Public Use
  Company Number: US-ASTRAZENECA-2013SE27812

PATIENT
  Age: 38 Year
  Sex: Female

DRUGS (12)
  1. NEXIUM [Suspect]
     Indication: GASTROOESOPHAGEAL REFLUX DISEASE
     Route: 048
  2. NEXIUM [Suspect]
     Indication: GASTROOESOPHAGEAL REFLUX DISEASE
     Route: 048
     Dates: start: 2002
  3. NEXIUM [Suspect]
     Indication: GASTROOESOPHAGEAL REFLUX DISEASE
     Route: 048
     Dates: start: 20070511
  4. GABAPENTIN [Concomitant]
  5. EXFORGE [Concomitant]
     Dosage: 5/325 MG EVERY DAY
  6. EXFORGE [Concomitant]
     Dosage: 5/325 MG
     Dates: start: 20081010
  7. CETRIZINE [Concomitant]
  8. FERROUS SULFATE [Concomitant]
  9. METHYLPRED [Concomitant]
     Dates: start: 20070511
  10. LORATADINE [Concomitant]
     Dates: start: 20071026
  11. CYCLOBENZAP [Concomitant]
  12. HYDROCHLOROT [Concomitant]

REACTIONS (12)
  - Bipolar disorder [Unknown]
  - Osteoporosis [Unknown]
  - Wrist fracture [Unknown]
  - Bone disorder [Unknown]
  - Multiple fractures [Unknown]
  - Bone pain [Unknown]
  - Gait disturbance [Unknown]
  - Back pain [Unknown]
  - Arthritis [Unknown]
  - Calcium deficiency [Unknown]
  - Arthralgia [Unknown]
  - Depression [Unknown]
